FAERS Safety Report 7559930-4 (Version None)
Quarter: 2011Q2

REPORT INFORMATION
  Report Type: 
  Country: None (occurrence: None)
  Receive Date: 20110621
  Receipt Date: 20110607
  Transmission Date: 20111010
  Serious: Yes (Hospitalization, Other)
  Sender: FDA-Public Use
  Company Number: PHHY2011BR50568

PATIENT
  Sex: Female

DRUGS (2)
  1. DIOVAN HCT [Suspect]
  2. FORMOTEROL FUMARATE [Suspect]
     Dosage: 12 MCG FORMOTEROL FUMARATE/400 MCG BUDESONIDE

REACTIONS (2)
  - PNEUMONIA [None]
  - CHRONIC OBSTRUCTIVE PULMONARY DISEASE [None]
